FAERS Safety Report 14038373 (Version 1)
Quarter: 2017Q4

REPORT INFORMATION
  Report Type: Spontaneous
  Country: FR (occurrence: FR)
  Receive Date: 20171004
  Receipt Date: 20171004
  Transmission Date: 20180321
  Serious: Yes (Hospitalization, Other)
  Sender: FDA-Public Use
  Company Number: FR-US WORLDMEDS, LLC-USW201709-001364

PATIENT
  Age: 44 Year
  Sex: Female

DRUGS (9)
  1. KETOPROFEN. [Suspect]
     Active Substance: KETOPROFEN
     Indication: PRODUCT USED FOR UNKNOWN INDICATION
     Route: 048
     Dates: start: 20170510, end: 20170510
  2. VOLTARENE [Suspect]
     Active Substance: DICLOFENAC SODIUM
     Indication: PRODUCT USED FOR UNKNOWN INDICATION
     Route: 048
     Dates: start: 20170510, end: 20170510
  3. SPASFON [Suspect]
     Active Substance: PHLOROGLUCINOL\1,3,5-TRIMETHOXYBENZENE
     Indication: PRODUCT USED FOR UNKNOWN INDICATION
     Route: 048
     Dates: start: 20170510, end: 20170510
  4. LAMALINE [Suspect]
     Active Substance: ACETAMINOPHEN\CAFFEINE\OPIUM
     Indication: PRODUCT USED FOR UNKNOWN INDICATION
     Route: 048
     Dates: start: 20170510, end: 20170510
  5. BISOPROLOL [Suspect]
     Active Substance: BISOPROLOL
     Indication: PRODUCT USED FOR UNKNOWN INDICATION
     Route: 048
     Dates: start: 20170510, end: 20170510
  6. CORGARD [Suspect]
     Active Substance: NADOLOL
     Indication: PRODUCT USED FOR UNKNOWN INDICATION
     Route: 048
     Dates: start: 20170510, end: 20170510
  7. ALPRAZOLAM. [Suspect]
     Active Substance: ALPRAZOLAM
     Indication: PRODUCT USED FOR UNKNOWN INDICATION
     Route: 048
     Dates: start: 20170510, end: 20170510
  8. CODOLIPRANE [Suspect]
     Active Substance: ACETAMINOPHEN\CODEINE PHOSPHATE
     Indication: PRODUCT USED FOR UNKNOWN INDICATION
     Route: 048
     Dates: start: 20170510, end: 20170510
  9. STRESAM [Suspect]
     Active Substance: ETIFOXINE
     Indication: PRODUCT USED FOR UNKNOWN INDICATION
     Route: 048
     Dates: start: 20170510, end: 20170510

REACTIONS (13)
  - Altered state of consciousness [Recovered/Resolved]
  - Bipolar disorder [None]
  - Erosive oesophagitis [None]
  - Somnolence [Recovered/Resolved]
  - Constipation [Recovered/Resolved]
  - Bradycardia [Recovered/Resolved]
  - Psychotic disorder [None]
  - Rectal haemorrhage [Recovered/Resolved]
  - Cardiogenic shock [Recovered/Resolved]
  - Melaena [Recovered/Resolved]
  - Gastritis [Recovering/Resolving]
  - Gastritis erosive [None]
  - Hypotension [Recovered/Resolved]

NARRATIVE: CASE EVENT DATE: 20170510
